FAERS Safety Report 23760934 (Version 3)
Quarter: 2024Q2

REPORT INFORMATION
  Report Type: Spontaneous
  Country: US (occurrence: US)
  Receive Date: 20240419
  Receipt Date: 20240508
  Transmission Date: 20240715
  Serious: No
  Sender: FDA-Public Use
  Company Number: US-LUPIN PHARMACEUTICALS INC.-2024-03169

PATIENT

DRUGS (1)
  1. CEFDINIR [Suspect]
     Active Substance: CEFDINIR
     Indication: Ear infection
     Dosage: 3 MILLILITER, BID
     Route: 048
     Dates: start: 20240406, end: 20240406

REACTIONS (3)
  - Contraindicated product administered [Unknown]
  - Product contamination physical [Unknown]
  - No adverse event [Unknown]

NARRATIVE: CASE EVENT DATE: 20240406
